FAERS Safety Report 4850675-8 (Version None)
Quarter: 2005Q4

REPORT INFORMATION
  Report Type: 
  Country: None (occurrence: None)
  Receive Date: 20051208
  Receipt Date: 20051208
  Transmission Date: 20060501
  Serious: Yes (Hospitalization)
  Sender: FDA-Public Use
  Company Number: None

PATIENT
  Age: 55 Year
  Sex: Female
  Weight: 58.0604 kg

DRUGS (14)
  1. DOCETAXEL [Suspect]
     Indication: PANCREATIC CARCINOMA
     Dosage: 56.7 MG IV WEEKLY X 3
     Route: 042
     Dates: start: 20051103, end: 20051110
  2. BEVACIZUMAB [Suspect]
     Indication: PANCREATIC CARCINOMA
     Dosage: 583 MG Q 14 DAYS X 2
     Dates: start: 20051103, end: 20051103
  3. ESTROGEN AND PROGESTERONE [Concomitant]
  4. . [Concomitant]
  5. ZOLOFT [Concomitant]
  6. OXYCONTIN [Concomitant]
  7. ALDACTONE [Concomitant]
  8. LASIX [Concomitant]
  9. DEXAMETHASONE [Concomitant]
  10. COLACE [Concomitant]
  11. OXYCODONE [Concomitant]
  12. AMBIEN [Concomitant]
  13. CELEBREX [Concomitant]
  14. DULCOLAX [Concomitant]

REACTIONS (2)
  - FEBRILE NEUTROPENIA [None]
  - MUCOSAL INFLAMMATION [None]
